FAERS Safety Report 6506892-4 (Version None)
Quarter: 2009Q4

REPORT INFORMATION
  Report Type: 
  Country: None (occurrence: None)
  Receive Date: 20091221
  Receipt Date: 20091209
  Transmission Date: 20100525
  Serious: Yes (Other)
  Sender: FDA-Public Use
  Company Number: US-SANOFI-AVENTIS-2009SA008987

PATIENT
  Age: 67 Year
  Sex: Female

DRUGS (5)
  1. LANTUS [Suspect]
     Indication: TYPE 2 DIABETES MELLITUS
     Dosage: DOSE:58 UNIT(S)
     Route: 058
     Dates: start: 20040101
  2. HUMALOG [Suspect]
     Indication: TYPE 2 DIABETES MELLITUS
     Dosage: PER SLIDING SCALE DEPENDING ON BLOOD SUGAR WITH MEALS
     Route: 058
     Dates: start: 20090901
  3. METOPROLOL TARTRATE [Concomitant]
  4. FEOSOL [Concomitant]
  5. GLIMEPIRIDE [Concomitant]

REACTIONS (4)
  - ANAEMIA [None]
  - BLOOD GLUCOSE INCREASED [None]
  - CORONARY ARTERY DISEASE [None]
  - HAEMOGLOBIN DECREASED [None]
